FAERS Safety Report 6814036-4 (Version None)
Quarter: 2010Q3

REPORT INFORMATION
  Report Type: 
  Country: None (occurrence: None)
  Receive Date: 20100702
  Receipt Date: 20100623
  Transmission Date: 20110219
  Serious: Yes (Death)
  Sender: FDA-Public Use
  Company Number: GB-ALEXION-A201000702

PATIENT

DRUGS (2)
  1. SOLIRIS [Suspect]
     Indication: HAEMOLYTIC URAEMIC SYNDROME
     Dosage: 900 MG, UNK
     Route: 042
     Dates: start: 20100603, end: 20100603
  2. ANTIBIOTICS [Concomitant]

REACTIONS (1)
  - DEATH [None]
